FAERS Safety Report 6448921-2 (Version None)
Quarter: 2009Q4

REPORT INFORMATION
  Report Type: 
  Country: None (occurrence: None)
  Receive Date: 20091119
  Receipt Date: 20091119
  Transmission Date: 20100525
  Serious: Yes (Other)
  Sender: FDA-Public Use
  Company Number: None

PATIENT
  Sex: Male
  Weight: 89.8122 kg

DRUGS (1)
  1. VERAPAMIL [Suspect]
     Indication: ARRHYTHMIA
     Dosage: 1 TABLET -240 MG- ONCE DAILY PO (1 DOSE ONLY)
     Route: 048
     Dates: start: 20091117, end: 20091117

REACTIONS (4)
  - ARRHYTHMIA [None]
  - CONDITION AGGRAVATED [None]
  - DRUG EFFECT INCREASED [None]
  - PRODUCT SUBSTITUTION ISSUE [None]
